FAERS Safety Report 7717540-X (Version None)
Quarter: 2011Q3

REPORT INFORMATION
  Report Type: 
  Country: None (occurrence: None)
  Receive Date: 20110830
  Receipt Date: 20110818
  Transmission Date: 20111222
  Serious: Yes (Other)
  Sender: FDA-Public Use
  Company Number: JP-ELI_LILLY_AND_COMPANY-JP201107003567

PATIENT
  Sex: Female
  Weight: 40 kg

DRUGS (8)
  1. LIPITOR [Concomitant]
     Dosage: UNK
     Route: 048
  2. RABEPRAZOLE SODIUM [Concomitant]
     Dosage: UNK
     Route: 048
  3. URSO 250 [Concomitant]
     Dosage: UNK
     Route: 048
  4. MUCOSTA [Concomitant]
     Dosage: UNK
     Route: 048
  5. LYRICA [Concomitant]
     Dosage: UNK
     Route: 048
  6. DICLOFENAC SODIUM [Concomitant]
     Dosage: UNK UNK, PRN
     Route: 054
  7. LOXONIN [Concomitant]
     Dosage: UNK
     Route: 048
  8. FORTEO [Suspect]
     Indication: OSTEOPOROSIS
     Dosage: 20 UG, QD
     Route: 058
     Dates: start: 20110607

REACTIONS (1)
  - SPINAL COMPRESSION FRACTURE [None]
